FAERS Safety Report 15881251 (Version 2)
Quarter: 2019Q1

REPORT INFORMATION
  Report Type: Report from Study
  Country: US (occurrence: US)
  Receive Date: 20190128
  Receipt Date: 20190212
  Transmission Date: 20190417
  Serious: Yes (Death, Hospitalization)
  Sender: FDA-Public Use
  Company Number: US-ACTELION-A-NJ2018-180609

PATIENT
  Age: 70 Year
  Sex: Female

DRUGS (1)
  1. OPSUMIT [Suspect]
     Active Substance: MACITENTAN
     Indication: PULMONARY ARTERIAL HYPERTENSION
     Dosage: UNK
     Route: 048
     Dates: start: 20180908, end: 201812

REACTIONS (10)
  - Nervousness [Fatal]
  - Pleuritic pain [Recovered/Resolved]
  - Anxiety [Fatal]
  - Cough [Recovered/Resolved]
  - Arthropathy [Unknown]
  - Sputum discoloured [Recovered/Resolved]
  - Asthenia [Recovered/Resolved]
  - Cardiac failure [Fatal]
  - Chest pain [Recovered/Resolved]
  - Constipation [Recovered/Resolved]

NARRATIVE: CASE EVENT DATE: 20181104
